FAERS Safety Report 4928918-1 (Version None)
Quarter: 2006Q1

REPORT INFORMATION
  Report Type: 
  Country: None (occurrence: None)
  Receive Date: 20060223
  Receipt Date: 20060205
  Transmission Date: 20060701
  Serious: Yes (Hospitalization)
  Sender: FDA-Public Use
  Company Number: 2006018005

PATIENT
  Age: 55 Year
  Sex: Male
  Weight: 112.4921 kg

DRUGS (4)
  1. VIAGRA [Suspect]
     Indication: ERECTILE DYSFUNCTION
     Dosage: 100 MG (100 MG, AS NECESSARY), ORAL
     Route: 048
  2. TERAZOSIN (TERAZOSIN) [Concomitant]
  3. GLIPIZIDE [Concomitant]
  4. OMEPRAZOLE [Concomitant]

REACTIONS (4)
  - BLOOD CHOLESTEROL INCREASED [None]
  - CONDITION AGGRAVATED [None]
  - DRUG INEFFECTIVE [None]
  - POST-TRAUMATIC STRESS DISORDER [None]
